FAERS Safety Report 25206415 (Version 1)
Quarter: 2025Q2

REPORT INFORMATION
  Report Type: Spontaneous
  Country: NL (occurrence: NL)
  Receive Date: 20250417
  Receipt Date: 20250417
  Transmission Date: 20250716
  Serious: Yes (Other)
  Sender: AUROBINDO
  Company Number: NL-LRB-01049996

PATIENT
  Age: 19 Year
  Sex: Female
  Weight: 56 kg

DRUGS (1)
  1. SERTRALINE HYDROCHLORIDE [Suspect]
     Active Substance: SERTRALINE HYDROCHLORIDE
     Indication: Anxiety
     Dosage: 50 MILLIGRAM, ONCE A DAY (1 PIECE ONCE A DAY)
     Route: 048
     Dates: start: 20250125, end: 20250328

REACTIONS (1)
  - Gastrointestinal haemorrhage [Not Recovered/Not Resolved]
